FAERS Safety Report 11798214 (Version 1)
Quarter: 2015Q4

REPORT INFORMATION
  Report Type: Spontaneous
  Country: CN (occurrence: CN)
  Receive Date: 20151203
  Receipt Date: 20151203
  Transmission Date: 20160305
  Serious: Yes (Hospitalization, Other)
  Sender: FDA-Public Use
  Company Number: CN-ELI_LILLY_AND_COMPANY-CN201511007376

PATIENT
  Age: 34 Year
  Sex: Female

DRUGS (3)
  1. TADALAFIL [Suspect]
     Active Substance: TADALAFIL
     Indication: PULMONARY HYPERTENSION
     Dosage: 10 MG, QD
     Route: 065
     Dates: start: 201404
  2. TREPROSTINIL [Concomitant]
     Active Substance: TREPROSTINIL
     Dosage: UNK, UNKNOWN
     Route: 058
  3. BOSENTAN [Suspect]
     Active Substance: BOSENTAN
     Indication: PULMONARY HYPERTENSION
     Dosage: 62.5 MG, BID
     Route: 065
     Dates: start: 201407

REACTIONS (16)
  - Systemic lupus erythematosus [Unknown]
  - Poor quality sleep [Unknown]
  - Nausea [Unknown]
  - Underdose [Unknown]
  - Evans syndrome [Unknown]
  - Antiphospholipid syndrome [Unknown]
  - Tachypnoea [Not Recovered/Not Resolved]
  - Asphyxia [Not Recovered/Not Resolved]
  - Chest discomfort [Unknown]
  - Chromaturia [Unknown]
  - Cor pulmonale chronic [Unknown]
  - Connective tissue disorder [Unknown]
  - Venous thrombosis [Unknown]
  - Decreased appetite [Unknown]
  - Lung infection [Unknown]
  - Diarrhoea [Unknown]

NARRATIVE: CASE EVENT DATE: 201507
